FAERS Safety Report 11012355 (Version 1)
Quarter: 2015Q2

REPORT INFORMATION
  Report Type: Spontaneous
  Country: US (occurrence: None)
  Receive Date: 20150410
  Receipt Date: 20150410
  Transmission Date: 20150821
  Serious: Yes (Hospitalization)
  Sender: FDA-Public Use
  Company Number: None

PATIENT
  Age: 65 Year
  Sex: Male
  Weight: 80.3 kg

DRUGS (1)
  1. ENOXAPARIN [Suspect]
     Active Substance: ENOXAPARIN
     Dosage: 90 MG BID SQ
     Route: 058
     Dates: start: 20141201, end: 20150306

REACTIONS (5)
  - Compartment syndrome [None]
  - Haemorrhage [None]
  - Haematoma [None]
  - Contusion [None]
  - Haemoglobin decreased [None]

NARRATIVE: CASE EVENT DATE: 20150302
